FAERS Safety Report 5897161-4 (Version None)
Quarter: 2008Q3

REPORT INFORMATION
  Report Type: 
  Country: None (occurrence: None)
  Receive Date: 20080923
  Receipt Date: 20080908
  Transmission Date: 20090109
  Serious: Yes (Hospitalization)
  Sender: FDA-Public Use
  Company Number: PAR_02341_2008

PATIENT
  Sex: Female
  Weight: 66 kg

DRUGS (5)
  1. DEXAMETHASONE [Suspect]
     Indication: DRUG USE FOR UNKNOWN INDICATION
     Dosage: (40 MG QD DAYS 1-4, 9-12, 17-20 ORAL)
     Route: 048
     Dates: start: 20061127, end: 20070101
  2. CP-751, 871 [Suspect]
     Indication: MULTIPLE MYELOMA
     Dosage: (1380 MG QD INTRAVENOUS, (1360 MG QD INTRAVENOUS), 1320 MG QD INTRAVENOUS) (NOT OTHERWISE SPECIFIED)
     Route: 042
     Dates: start: 20061023, end: 20061023
  3. CP-751, 871 [Suspect]
     Indication: MULTIPLE MYELOMA
     Dosage: (1380 MG QD INTRAVENOUS, (1360 MG QD INTRAVENOUS), 1320 MG QD INTRAVENOUS) (NOT OTHERWISE SPECIFIED)
     Route: 042
     Dates: start: 20061127, end: 20061127
  4. CP-751, 871 [Suspect]
     Indication: MULTIPLE MYELOMA
     Dosage: (1380 MG QD INTRAVENOUS, (1360 MG QD INTRAVENOUS), 1320 MG QD INTRAVENOUS) (NOT OTHERWISE SPECIFIED)
     Route: 042
     Dates: start: 20061222, end: 20061222
  5. RAPAMYCIN (SIROLIMUS) [Concomitant]

REACTIONS (8)
  - BLOOD CREATININE INCREASED [None]
  - BLOOD PHOSPHORUS INCREASED [None]
  - CONFUSIONAL STATE [None]
  - DISORIENTATION [None]
  - DIZZINESS [None]
  - FALL [None]
  - MUSCULAR WEAKNESS [None]
  - WHEELCHAIR USER [None]
